FAERS Safety Report 10360652 (Version 1)
Quarter: 2014Q3

REPORT INFORMATION
  Report Type: Spontaneous
  Country: US (occurrence: None)
  Receive Date: 20140731
  Receipt Date: 20140731
  Transmission Date: 20150326
  Serious: Yes (Death, Hospitalization, Other)
  Sender: FDA-Public Use
  Company Number: 2014AP003690

PATIENT
  Sex: Female

DRUGS (5)
  1. TACROLIMUS (TACROLIMUS) [Suspect]
     Active Substance: TACROLIMUS
     Indication: PROPHYLAXIS AGAINST GRAFT VERSUS HOST DISEASE
  2. MYCOPHENOLATE MOFETIL. [Suspect]
     Active Substance: MYCOPHENOLATE MOFETIL
     Indication: PRODUCT USED FOR UNKNOWN INDICATION
  3. BUSULFAN (BUSULFAN) (BUSULFAN) [Suspect]
     Active Substance: BUSULFAN
     Indication: PRODUCT USED FOR UNKNOWN INDICATION
  4. CYCLOSPORINE. [Suspect]
     Active Substance: CYCLOSPORINE
     Indication: PRODUCT USED FOR UNKNOWN INDICATION
  5. RAPAMUNE [Concomitant]
     Active Substance: SIROLIMUS

REACTIONS (5)
  - Graft versus host disease in gastrointestinal tract [None]
  - Posterior reversible encephalopathy syndrome [None]
  - Toxicity to various agents [None]
  - Gait disturbance [None]
  - Hyponatraemia [None]
